FAERS Safety Report 17434213 (Version 2)
Quarter: 2020Q1

REPORT INFORMATION
  Report Type: Spontaneous
  Country: US (occurrence: US)
  Receive Date: 20200219
  Receipt Date: 20200330
  Transmission Date: 20200409
  Serious: Yes (Hospitalization)
  Sender: FDA-Public Use
  Company Number: US-ELI_LILLY_AND_COMPANY-US202002003643

PATIENT
  Age: 53 Year
  Sex: Male

DRUGS (2)
  1. METFORMIN [Concomitant]
     Active Substance: METFORMIN HYDROCHLORIDE
     Indication: TYPE 2 DIABETES MELLITUS
     Dosage: 500 MG, BID
  2. HUMALOG [Suspect]
     Active Substance: INSULIN LISPRO
     Indication: TYPE 2 DIABETES MELLITUS
     Dosage: UNK UNK, DAILY (10 UNITS WITH EACH MEAL)
     Route: 058

REACTIONS (7)
  - Crying [Unknown]
  - Blood glucose increased [Unknown]
  - Blood glucose increased [Unknown]
  - Visual impairment [Unknown]
  - Dysphonia [Unknown]
  - Dehydration [Unknown]
  - Emotional disorder [Unknown]

NARRATIVE: CASE EVENT DATE: 20200206
